FAERS Safety Report 8512070-X (Version None)
Quarter: 2012Q3

REPORT INFORMATION
  Report Type: 
  Country: None (occurrence: None)
  Receive Date: 20120716
  Receipt Date: 20120712
  Transmission Date: 20120928
  Serious: Yes (Other)
  Sender: FDA-Public Use
  Company Number: PHHY2012BR038411

PATIENT
  Sex: Female

DRUGS (1)
  1. AMLODOPINE BESYLATE AND VALSARTAN [Suspect]
     Indication: HYPERTENSION
     Dosage: 1 DF (160 MG VALSAR AND 5 MG AMLO), DAILY
     Dates: start: 20120404, end: 20120513

REACTIONS (2)
  - BLOOD PRESSURE FLUCTUATION [None]
  - OEDEMA PERIPHERAL [None]
